FAERS Safety Report 4950874-0 (Version None)
Quarter: 2006Q1

REPORT INFORMATION
  Report Type: 
  Country: None (occurrence: None)
  Receive Date: 20060316
  Receipt Date: 20060309
  Transmission Date: 20060701
  Serious: Yes (Other)
  Sender: FDA-Public Use
  Company Number: CA-2006-004248

PATIENT
  Age: 38 Year
  Sex: Female

DRUGS (1)
  1. MIRENA [Suspect]
     Indication: MENORRHAGIA
     Dosage: 20 UG/DAY, CONT, INTRA-UTERINE
     Route: 015
     Dates: start: 20040201, end: 20060227

REACTIONS (6)
  - ASTHENOPIA [None]
  - BLINDNESS [None]
  - CONDITION AGGRAVATED [None]
  - EYE PAIN [None]
  - IRITIS [None]
  - VISION BLURRED [None]
